FAERS Safety Report 9499632 (Version 2)
Quarter: 2013Q3

REPORT INFORMATION
  Report Type: Spontaneous
  Country: US (occurrence: US)
  Receive Date: 20130905
  Receipt Date: 20130905
  Transmission Date: 20140515
  Serious: No
  Sender: FDA-Public Use
  Company Number: US-TEVA-420858USA

PATIENT
  Age: 19 Year
  Sex: Female

DRUGS (3)
  1. CLARAVIS [Suspect]
     Dosage: 60 MILLIGRAM DAILY;
     Dates: start: 20130710, end: 20130720
  2. CLARAVIS [Suspect]
     Dosage: 30 MILLIGRAM DAILY;
     Dates: start: 20130723
  3. CILEST [Concomitant]
     Dosage: .025 MILLIGRAM DAILY;

REACTIONS (5)
  - Back pain [Recovered/Resolved]
  - Abdominal pain upper [Recovered/Resolved]
  - Crying [Unknown]
  - Nausea [Unknown]
  - Hyperhidrosis [Unknown]
